FAERS Safety Report 7937177-7 (Version None)
Quarter: 2011Q4

REPORT INFORMATION
  Report Type: 
  Country: None (occurrence: None)
  Receive Date: 20111123
  Receipt Date: 20111116
  Transmission Date: 20120403
  Serious: Yes (Hospitalization)
  Sender: FDA-Public Use
  Company Number: US-GLAXOSMITHKLINE-A0871881A

PATIENT
  Sex: Female
  Weight: 90.9 kg

DRUGS (6)
  1. ATENOLOL [Concomitant]
  2. GLUCOPHAGE [Concomitant]
  3. LIPITOR [Concomitant]
  4. AVANDIA [Suspect]
     Indication: DIABETES MELLITUS
     Dosage: 4MG PER DAY
     Route: 048
     Dates: start: 20000731, end: 20040101
  5. CELEBREX [Concomitant]
  6. ESTRADIOL [Concomitant]

REACTIONS (1)
  - MYOCARDIAL INFARCTION [None]
